FAERS Safety Report 6590474-2 (Version None)
Quarter: 2010Q1

REPORT INFORMATION
  Report Type: 
  Country: None (occurrence: None)
  Receive Date: 20100219
  Receipt Date: 20100211
  Transmission Date: 20100710
  Serious: Yes (Other)
  Sender: FDA-Public Use
  Company Number: CH-ROCHE-685092

PATIENT
  Age: 71 Year
  Sex: Female

DRUGS (1)
  1. BONIVA [Suspect]
     Indication: OSTEOPOROSIS POSTMENOPAUSAL
     Dosage: FORM: INJECTION; RECEIVED SINGLE INJECTION
     Route: 042

REACTIONS (1)
  - CHONDROCALCINOSIS [None]
